FAERS Safety Report 8133392-0 (Version None)
Quarter: 2012Q1

REPORT INFORMATION
  Report Type: 
  Country: None (occurrence: None)
  Receive Date: 20120213
  Receipt Date: 20120207
  Transmission Date: 20120608
  Serious: Yes (Hospitalization, Other)
  Sender: FDA-Public Use
  Company Number: US-BAYER-2012-012877

PATIENT

DRUGS (1)
  1. YAZ [Suspect]
     Dosage: UNK
     Dates: start: 20070801, end: 20100101

REACTIONS (11)
  - VOMITING [None]
  - WEIGHT DECREASED [None]
  - ANXIETY [None]
  - ANHEDONIA [None]
  - IMPAIRED GASTRIC EMPTYING [None]
  - PAIN [None]
  - NERVE INJURY [None]
  - INJURY [None]
  - NAUSEA [None]
  - GALLBLADDER DISORDER [None]
  - ABDOMINAL PAIN [None]
